FAERS Safety Report 18338044 (Version 1)
Quarter: 2020Q4

REPORT INFORMATION
  Report Type: Spontaneous
  Country: US (occurrence: US)
  Receive Date: 20201001
  Receipt Date: 20201001
  Transmission Date: 20210113
  Serious: Yes (Hospitalization)
  Sender: FDA-Public Use
  Company Number: None

PATIENT
  Age: 80 Year
  Sex: Female

DRUGS (4)
  1. AMLODIPINE [Concomitant]
     Active Substance: AMLODIPINE BESYLATE
  2. FAMOTIDINE. [Concomitant]
     Active Substance: FAMOTIDINE
  3. SIMVASTATIN. [Concomitant]
     Active Substance: SIMVASTATIN
  4. CINACALCET. [Suspect]
     Active Substance: CINACALCET
     Indication: PRODUCT USED FOR UNKNOWN INDICATION
     Route: 048
     Dates: start: 20191226

REACTIONS (2)
  - Head injury [None]
  - Fall [None]

NARRATIVE: CASE EVENT DATE: 20200930
